FAERS Safety Report 8543935-0 (Version None)
Quarter: 2012Q3

REPORT INFORMATION
  Report Type: 
  Country: None (occurrence: None)
  Receive Date: 20120727
  Receipt Date: 20120717
  Transmission Date: 20120928
  Serious: Yes (Hospitalization)
  Sender: FDA-Public Use
  Company Number: US-BAYER-2012-074653

PATIENT
  Sex: Male

DRUGS (3)
  1. XARELTO [Interacting]
     Indication: ATRIAL FIBRILLATION
  2. ASPIRIN [Suspect]
     Indication: PRODUCT USED FOR UNKNOWN INDICATION
  3. XARELTO [Interacting]
     Indication: CEREBROVASCULAR ACCIDENT
     Dosage: 20 MG, QD
     Route: 048

REACTIONS (4)
  - COLON CANCER [None]
  - IMPAIRED SELF-CARE [None]
  - GASTROINTESTINAL HAEMORRHAGE [None]
  - HOSPITALISATION [None]
